FAERS Safety Report 19005047 (Version 2)
Quarter: 2021Q2

REPORT INFORMATION
  Report Type: Spontaneous
  Country: CH (occurrence: CH)
  Receive Date: 20210312
  Receipt Date: 20210402
  Transmission Date: 20210717
  Serious: No
  Sender: FDA-Public Use
  Company Number: CH-BIOGEN-2021BI00989288

PATIENT
  Sex: Female

DRUGS (2)
  1. TYSABRI [Suspect]
     Active Substance: NATALIZUMAB
     Indication: RELAPSING-REMITTING MULTIPLE SCLEROSIS
     Route: 065
     Dates: start: 200805
  2. MARCOUMAR [Concomitant]
     Active Substance: PHENPROCOUMON
     Indication: PELVIC VENOUS THROMBOSIS
     Route: 065
     Dates: end: 201401

REACTIONS (3)
  - Iron deficiency [Unknown]
  - Multiple sclerosis relapse [Unknown]
  - Vestibular neuronitis [Unknown]

NARRATIVE: CASE EVENT DATE: 200805
